FAERS Safety Report 7091284-2 (Version None)
Quarter: 2010Q4

REPORT INFORMATION
  Report Type: 
  Country: None (occurrence: None)
  Receive Date: 20101109
  Receipt Date: 20101104
  Transmission Date: 20110411
  Serious: Yes (Life-Threatening, Hospitalization, Other)
  Sender: FDA-Public Use
  Company Number: DE-PFIZER INC-2009209930

PATIENT
  Age: 69 Year
  Sex: Female
  Weight: 70 kg

DRUGS (32)
  1. ANIDULAFUNGIN [Suspect]
     Indication: SYSTEMIC CANDIDA
     Dosage: UNK MG, 2X/DAY
     Route: 042
     Dates: start: 20090430, end: 20090505
  2. VORICONAZOLE [Suspect]
     Indication: SYSTEMIC CANDIDA
     Dosage: 280 MG, 2X/DAY
     Route: 042
     Dates: start: 20090430, end: 20090506
  3. CIPROFLOXACIN [Suspect]
     Indication: INFECTION PROPHYLAXIS
     Dosage: UNK
     Route: 042
     Dates: start: 20090506, end: 20090506
  4. CIPROFLOXACIN [Suspect]
     Dosage: UNK
     Route: 042
     Dates: start: 20090507, end: 20090507
  5. DOXYCYCLINE [Suspect]
     Indication: INFECTION PROPHYLAXIS
     Dosage: UNK
     Route: 048
     Dates: start: 20090507, end: 20090514
  6. AVELOX [Concomitant]
  7. ACICLOVIR [Concomitant]
     Dosage: UNK
     Route: 048
     Dates: start: 20090430, end: 20090506
  8. ALDACTONE [Concomitant]
     Dosage: UNK
     Route: 048
     Dates: start: 20090504, end: 20090506
  9. ANTITHROMBIN III [Concomitant]
     Dosage: UNK
     Route: 042
     Dates: start: 20090502, end: 20090502
  10. CALCIVIT D [Concomitant]
     Dosage: UNK
     Route: 048
     Dates: start: 20090430, end: 20090506
  11. CEFTAZIDIME [Concomitant]
     Dosage: UNK
     Route: 042
     Dates: start: 20090430, end: 20090506
  12. DOXAZOSIN MESILATE [Concomitant]
     Dosage: UNK
     Route: 048
     Dates: start: 20090430, end: 20090506
  13. ENOXAPARIN SODIUM [Concomitant]
     Dosage: UNK
     Dates: start: 20090430
  14. FUROSEMID [Concomitant]
     Dosage: UNK
     Dates: start: 20090501
  15. GLYCERYL TRINITRATE [Concomitant]
     Dosage: UNK
     Dates: start: 20090504, end: 20090505
  16. HYDROCHLOROTHIAZIDE [Concomitant]
     Dosage: UNK
     Route: 048
     Dates: start: 20090430, end: 20090506
  17. KALINOR [Concomitant]
     Dosage: UNK
     Route: 042
     Dates: start: 20090430
  18. KALINOR-ACID [Concomitant]
     Dosage: UNK
     Route: 048
     Dates: start: 20090504, end: 20090506
  19. LENOGRASTIM [Concomitant]
     Dosage: UNK
     Dates: start: 20090430, end: 20090430
  20. METRONIDAZOLE [Concomitant]
     Dosage: UNK
     Route: 048
     Dates: start: 20090430, end: 20090503
  21. MOXIFLOXACIN [Concomitant]
     Dosage: UNK
     Route: 042
     Dates: start: 20090430, end: 20090505
  22. ONDANSETRON [Concomitant]
     Dosage: UNK
     Route: 042
     Dates: start: 20090430, end: 20090505
  23. PHYTOMENADION [Concomitant]
     Dosage: UNK
     Route: 042
     Dates: start: 20090430, end: 20090505
  24. PREDNISOLON [Concomitant]
     Dosage: UNK
     Dates: start: 20090505, end: 20090505
  25. RAMIPRIL [Concomitant]
     Dosage: UNK
     Route: 048
     Dates: start: 20090430, end: 20090506
  26. RANITIDINE [Concomitant]
     Dosage: UNK
     Route: 048
     Dates: start: 20090430, end: 20090506
  27. SALBUTAMOL SULFATE [Concomitant]
     Dosage: UNK
     Dates: start: 20090501, end: 20090505
  28. STEROFUNDIN [Concomitant]
     Dosage: UNK
     Route: 042
     Dates: start: 20090430, end: 20090504
  29. TERBUTALINE SULFATE [Concomitant]
     Dosage: UNK
     Dates: start: 20090504, end: 20090504
  30. TORASEMIDE [Concomitant]
     Dosage: UNK
     Route: 048
     Dates: start: 20090430, end: 20090506
  31. VANCOMYCIN [Concomitant]
     Dosage: UNK
     Route: 042
     Dates: start: 20090430, end: 20090504
  32. VERAPAMIL [Concomitant]
     Dosage: UNK
     Route: 048
     Dates: start: 20090430, end: 20090506

REACTIONS (3)
  - RESPIRATORY FAILURE [None]
  - TACHYCARDIA [None]
  - VENTRICULAR FIBRILLATION [None]
